FAERS Safety Report 25862612 (Version 1)
Quarter: 2025Q3

REPORT INFORMATION
  Report Type: Spontaneous
  Country: US (occurrence: US)
  Receive Date: 20250930
  Receipt Date: 20250930
  Transmission Date: 20251020
  Serious: No
  Sender: ROCHE
  Company Number: US-ROCHE-10000394377

PATIENT
  Sex: Female
  Weight: 56.699 kg

DRUGS (6)
  1. XOLAIR [Suspect]
     Active Substance: OMALIZUMAB
     Indication: Food allergy
     Dosage: FIRST SHOT WAS 1 OF THE 150 (UNIT UNABLE TO BE CLARIFIED) IN EACH ARM (TOTAL 300MG), THEN LAST MONTH
     Route: 065
     Dates: start: 202508
  2. XOLAIR [Suspect]
     Active Substance: OMALIZUMAB
  3. SPIRONOLACTONE [Concomitant]
     Active Substance: SPIRONOLACTONE
  4. XYZAL [Concomitant]
     Active Substance: LEVOCETIRIZINE DIHYDROCHLORIDE
  5. MONTELUKAST [Concomitant]
     Active Substance: MONTELUKAST
  6. FLUOXETINE [Concomitant]
     Active Substance: FLUOXETINE HYDROCHLORIDE
     Indication: Anxiety

REACTIONS (2)
  - Fatigue [Unknown]
  - Pain [Unknown]
